FAERS Safety Report 20332127 (Version 2)
Quarter: 2022Q1

REPORT INFORMATION
  Report Type: Spontaneous
  Country: JP (occurrence: JP)
  Receive Date: 20220113
  Receipt Date: 20220222
  Transmission Date: 20220423
  Serious: Yes (Other)
  Sender: FDA-Public Use
  Company Number: JP-MYLANLABS-2022M1002217

PATIENT
  Age: 64 Year
  Sex: Female

DRUGS (4)
  1. CARBOPLATIN [Suspect]
     Active Substance: CARBOPLATIN
     Indication: Bladder squamous cell carcinoma stage III
     Dosage: 3 CYCLES
     Route: 065
  2. CISPLATIN [Suspect]
     Active Substance: CISPLATIN
     Indication: Bladder squamous cell carcinoma stage III
     Dosage: 2 CYCLES
     Route: 065
  3. GEMCITABINE [Suspect]
     Active Substance: GEMCITABINE
     Indication: Bladder squamous cell carcinoma stage III
     Dosage: INITIALLY 2 CYCLES FOLLOWED BY 3 CYCLES
     Route: 065
  4. DOCETAXEL [Suspect]
     Active Substance: DOCETAXEL
     Indication: Bladder squamous cell carcinoma stage III
     Dosage: 3 CYCLES
     Route: 065

REACTIONS (1)
  - Drug ineffective [Unknown]
